FAERS Safety Report 8859446 (Version 2)
Quarter: 2012Q4

REPORT INFORMATION
  Report Type: 
  Country: DE (occurrence: DE)
  Receive Date: 20121024
  Receipt Date: 20121101
  Transmission Date: 20130627
  Serious: Yes (Hospitalization)
  Sender: FDA-Public Use
  Company Number: DE-PFIZER INC-2012263563

PATIENT
  Age: 17 Year
  Sex: Female

DRUGS (3)
  1. PANTOZOL [Suspect]
     Dosage: 15x10 40 mg tablets once
     Route: 048
     Dates: start: 20121013, end: 20121013
  2. IBUPROFEN [Suspect]
     Dosage: 14 g, single
     Route: 065
     Dates: start: 20121013, end: 20121013
  3. DICLOFENAC [Suspect]
     Dosage: 500 mg, single
     Dates: start: 20121013, end: 20121013

REACTIONS (4)
  - Intentional overdose [Recovered/Resolved]
  - Suicide attempt [Recovered/Resolved]
  - Abdominal tenderness [Not Recovered/Not Resolved]
  - Dizziness [Not Recovered/Not Resolved]
